FAERS Safety Report 7942007-3 (Version None)
Quarter: 2011Q4

REPORT INFORMATION
  Report Type: 
  Country: None (occurrence: None)
  Receive Date: 20111122
  Receipt Date: 20111109
  Transmission Date: 20120403
  Serious: Yes (Other)
  Sender: FDA-Public Use
  Company Number: APL-2011-00041

PATIENT
  Age: 39 Year
  Sex: Female

DRUGS (5)
  1. TARGIN (NALOXONE HYDROCHLORIDE, OXYCODONE HYDROCHLORIDE) [Concomitant]
  2. METHADONE HCL [Concomitant]
  3. FENTANYL [Suspect]
     Indication: PAIN
     Dosage: 100 UG 400 UG 800 UG 200 UG 400 UG
     Dates: start: 20110921
  4. FENTANYL [Suspect]
     Indication: PAIN
     Dosage: 100 UG 400 UG 800 UG 200 UG 400 UG
     Dates: start: 20111109
  5. FENTANYL [Suspect]
     Indication: PAIN
     Dosage: 100 UG 400 UG 800 UG 200 UG 400 UG
     Dates: start: 20110919, end: 20110921

REACTIONS (4)
  - LOSS OF CONSCIOUSNESS [None]
  - DRUG INEFFECTIVE [None]
  - WRONG TECHNIQUE IN DRUG USAGE PROCESS [None]
  - RESPIRATORY RATE DECREASED [None]
